FAERS Safety Report 9062447 (Version 2)
Quarter: 2013Q1

REPORT INFORMATION
  Report Type: Report from Study
  Country: GB (occurrence: GB)
  Receive Date: 20130129
  Receipt Date: 20130129
  Transmission Date: 20140127
  Serious: Yes (Other)
  Sender: FDA-Public Use
  Company Number: GB-ROCHE-1160387

PATIENT
  Age: 43 None
  Sex: Female
  Weight: 90.5 kg

DRUGS (18)
  1. RITUXIMAB [Suspect]
     Indication: B-CELL LYMPHOMA
     Dosage: DATE OF LAST DOSE PRIOR TO SAE: 24/JUL/2012
     Route: 058
     Dates: start: 20120529
  2. RITUXIMAB [Suspect]
     Dosage: LAST DOSE PRIOR TO SAE-24/JUL/2012
     Route: 058
     Dates: start: 20120626
  3. RITUXIMAB [Suspect]
     Dosage: LAST DOSE PRIOR TO SAE-24/JUL/2012
     Route: 058
     Dates: start: 20120724
  4. RITUXIMAB [Suspect]
     Route: 058
     Dates: start: 20120821
  5. RITUXIMAB [Suspect]
     Route: 058
     Dates: start: 20120918
  6. RITUXIMAB [Suspect]
     Route: 058
     Dates: start: 20121016
  7. RITUXIMAB [Suspect]
     Route: 058
     Dates: start: 20121113
  8. RITUXIMAB [Suspect]
     Dosage: LAST DOSE PRIOR TO SAE-24/JUL/2012
     Route: 042
     Dates: start: 20120501
  9. RITUXIMAB [Suspect]
     Route: 058
     Dates: start: 20130109
  10. ACICLOVIR [Concomitant]
     Indication: VIRAL INFECTION
     Route: 065
     Dates: start: 20120501, end: 20121016
  11. DALTEPARIN [Concomitant]
     Indication: COAGULOPATHY
     Dosage: 5000 IU
     Route: 065
     Dates: start: 20120529, end: 20120724
  12. COTRIMOXAZOLE [Concomitant]
     Indication: INFECTION
     Route: 065
     Dates: start: 20120501
  13. CHLORPHENAMINE [Concomitant]
     Indication: HYPERSENSITIVITY
     Route: 065
     Dates: start: 20120501
  14. PARACETAMOL [Concomitant]
     Indication: PAIN
     Route: 065
     Dates: start: 20120501
  15. PREDNISOLONE [Concomitant]
     Indication: HYPERSENSITIVITY
     Route: 065
     Dates: start: 20120501
  16. PREDNISOLONE [Concomitant]
     Indication: INFLAMMATION
  17. ONDANSETRON [Concomitant]
     Indication: NAUSEA
     Route: 065
     Dates: start: 20120501
  18. ONDANSETRON [Concomitant]
     Indication: VOMITING

REACTIONS (2)
  - Injection site erythema [Recovered/Resolved]
  - Flushing [Recovered/Resolved]
